FAERS Safety Report 5866111-9 (Version None)
Quarter: 2008Q3

REPORT INFORMATION
  Report Type: 
  Country: None (occurrence: None)
  Receive Date: 20080829
  Receipt Date: 20080818
  Transmission Date: 20090109
  Serious: Yes (Other)
  Sender: FDA-Public Use
  Company Number: JP-PFIZER INC-2008066607

PATIENT
  Sex: Male
  Weight: 56 kg

DRUGS (3)
  1. CHANTIX [Suspect]
     Indication: NICOTINE DEPENDENCE
     Route: 048
     Dates: start: 20080625, end: 20080806
  2. NORVASC [Concomitant]
     Indication: HYPERTENSION
     Route: 048
  3. MUCODYNE [Concomitant]
     Route: 048
     Dates: start: 20080723, end: 20080812

REACTIONS (6)
  - ALTERED STATE OF CONSCIOUSNESS [None]
  - AMNESIA [None]
  - BLOOD PRESSURE INCREASED [None]
  - NEUROSIS [None]
  - PAIN [None]
  - TRANSIENT ISCHAEMIC ATTACK [None]
